FAERS Safety Report 19428377 (Version 2)
Quarter: 2021Q3

REPORT INFORMATION
  Report Type: Spontaneous
  Country: GB (occurrence: GB)
  Receive Date: 20210617
  Receipt Date: 20210819
  Transmission Date: 20211014
  Serious: Yes (Hospitalization, Other)
  Sender: FDA-Public Use
  Company Number: GB-REGENERON PHARMACEUTICALS, INC.-2021-59427

PATIENT

DRUGS (11)
  1. OMEPRAZOLE. [Concomitant]
     Active Substance: OMEPRAZOLE
     Dosage: 40 MG, QD
  2. PRALUENT [Suspect]
     Active Substance: ALIROCUMAB
     Indication: TYPE IIA HYPERLIPIDAEMIA
     Dosage: 150 MG, QOW
  3. CARBOMER [Concomitant]
     Active Substance: CARBOMER
     Dosage: 1 DF, PRN
     Route: 031
  4. CARMELLOSE [Concomitant]
     Active Substance: CARBOXYMETHYLCELLULOSE
     Dosage: 1 DROP, PRN
     Route: 031
  5. LEVOTHYROXINE. [Concomitant]
     Active Substance: LEVOTHYROXINE
     Dosage: 100 UG, QD
     Route: 048
  6. METFORMIN [Concomitant]
     Active Substance: METFORMIN HYDROCHLORIDE
     Dosage: 500 MG, QD
     Route: 048
  7. SALBUTAMOL [Concomitant]
     Active Substance: ALBUTEROL
     Dosage: 2 DF, PRN
     Route: 055
  8. LEVOTHYROXINE. [Concomitant]
     Active Substance: LEVOTHYROXINE
     Dosage: 25 UG, QD
     Route: 048
  9. CLENIL MODULITE [Concomitant]
     Active Substance: BECLOMETHASONE DIPROPIONATE
     Dosage: 2 DF, BID
     Route: 055
  10. LISINOPRIL. [Concomitant]
     Active Substance: LISINOPRIL
     Dosage: 20 MG, QD
     Route: 048
  11. METFORMIN [Concomitant]
     Active Substance: METFORMIN HYDROCHLORIDE
     Dosage: 1000 MG, QD
     Route: 048

REACTIONS (21)
  - C-reactive protein abnormal [Unknown]
  - Renal cyst [Unknown]
  - Hypotension [Unknown]
  - Thyroxine free abnormal [Unknown]
  - Loss of consciousness [Unknown]
  - Circulatory collapse [Unknown]
  - Abdominal pain [Recovering/Resolving]
  - Weight decreased [Not Recovered/Not Resolved]
  - Pulmonary mass [Unknown]
  - Campylobacter gastroenteritis [Unknown]
  - Diarrhoea [Recovering/Resolving]
  - Defaecation urgency [Unknown]
  - Decreased appetite [Unknown]
  - Hepatic steatosis [Unknown]
  - Blood thyroid stimulating hormone decreased [Unknown]
  - Diverticulitis [Unknown]
  - Fall [Unknown]
  - Faecal elastase concentration decreased [Unknown]
  - Campylobacter test positive [Unknown]
  - Haematochezia [Unknown]
  - White blood cell count increased [Unknown]

NARRATIVE: CASE EVENT DATE: 2021
